FAERS Safety Report 5808591-0 (Version None)
Quarter: 2008Q3

REPORT INFORMATION
  Report Type: 
  Country: None (occurrence: None)
  Receive Date: 20080714
  Receipt Date: 20080630
  Transmission Date: 20090109
  Serious: Yes (Hospitalization)
  Sender: FDA-Public Use
  Company Number: GB-AMGEN-UK291046

PATIENT
  Sex: Male

DRUGS (11)
  1. PANITUMUMAB [Suspect]
     Dates: start: 20080623, end: 20080628
  2. EPIRUBICIN [Concomitant]
     Dates: start: 20080623, end: 20080628
  3. OXALIPLATIN [Concomitant]
     Dates: start: 20080623, end: 20080628
  4. CAPECITABINE [Concomitant]
     Dates: end: 20080628
  5. UNSPECIFIED STEROIDS [Concomitant]
  6. DILTIAZEM [Concomitant]
  7. RAMIPRIL [Concomitant]
  8. SIMVASTATIN [Concomitant]
  9. ASPIRIN [Concomitant]
  10. METOPROLOL TARTRATE [Concomitant]
  11. HALOPERIDOL [Concomitant]

REACTIONS (3)
  - ANOREXIA [None]
  - DEHYDRATION [None]
  - DIARRHOEA [None]
